FAERS Safety Report 13520456 (Version 1)
Quarter: 2017Q2

REPORT INFORMATION
  Report Type: Spontaneous
  Country: CN (occurrence: CN)
  Receive Date: 20170508
  Receipt Date: 20170508
  Transmission Date: 20170830
  Serious: Yes (Hospitalization, Disabling)
  Sender: FDA-Public Use
  Company Number: CN-ROCHE-1931371

PATIENT
  Age: 57 Year
  Sex: Female
  Weight: 56.5 kg

DRUGS (3)
  1. IRINOTECAN HYDROCHLORIDE. [Suspect]
     Active Substance: IRINOTECAN HYDROCHLORIDE
     Indication: BREAST CANCER METASTATIC
     Route: 041
     Dates: start: 20161210, end: 20161210
  2. CARBOPLATIN. [Suspect]
     Active Substance: CARBOPLATIN
     Indication: BREAST CANCER METASTATIC
     Route: 041
     Dates: start: 20161210, end: 20161210
  3. HERCEPTIN [Suspect]
     Active Substance: TRASTUZUMAB
     Indication: BREAST CANCER METASTATIC
     Dosage: POWDER INJECTION
     Route: 041
     Dates: start: 20161210, end: 20161210

REACTIONS (1)
  - Bone marrow failure [Recovered/Resolved]

NARRATIVE: CASE EVENT DATE: 20161223
